FAERS Safety Report 21022434 (Version 1)
Quarter: 2022Q2

REPORT INFORMATION
  Report Type: Report from Study
  Country: US (occurrence: None)
  Receive Date: 20220629
  Receipt Date: 20220629
  Transmission Date: 20220721
  Serious: Yes (Other)
  Sender: FDA-Public Use
  Company Number: 2022A230662

PATIENT
  Sex: Female
  Weight: 60.8 kg

DRUGS (10)
  1. TAGRISSO [Suspect]
     Active Substance: OSIMERTINIB
     Indication: Lung neoplasm malignant
     Route: 048
     Dates: start: 20190502
  2. ZINC [Concomitant]
     Active Substance: ZINC
     Route: 065
  3. VITAMIN D3 [Concomitant]
     Active Substance: CHOLECALCIFEROL
     Route: 065
  4. VITAMINS [Concomitant]
     Active Substance: VITAMINS
     Route: 065
  5. LEVOTHYROXINE [Concomitant]
     Active Substance: LEVOTHYROXINE
     Route: 065
  6. OMEPRAZOLE [Concomitant]
     Active Substance: OMEPRAZOLE
     Route: 065
  7. VITAMIN C [Concomitant]
     Active Substance: ASCORBIC ACID
     Route: 065
  8. GABAPENTIN [Concomitant]
     Active Substance: GABAPENTIN
     Route: 065
  9. ZANTAC [Concomitant]
     Active Substance: RANITIDINE HYDROCHLORIDE
     Route: 065
  10. XARELTO [Concomitant]
     Active Substance: RIVAROXABAN
     Route: 065

REACTIONS (13)
  - Oesophageal obstruction [Unknown]
  - Dehydration [Unknown]
  - Vertigo [Unknown]
  - Abdominal distension [Unknown]
  - Faeces soft [Unknown]
  - Flatulence [Unknown]
  - Skin atrophy [Unknown]
  - Skin laceration [Unknown]
  - Onychoclasis [Unknown]
  - Productive cough [Unknown]
  - Nausea [Unknown]
  - Infection [Unknown]
  - Oropharyngeal pain [Unknown]
